FAERS Safety Report 5386320-5 (Version None)
Quarter: 2007Q3

REPORT INFORMATION
  Report Type: 
  Country: None (occurrence: None)
  Receive Date: 20070713
  Receipt Date: 20070704
  Transmission Date: 20080115
  Serious: Yes (Death, Hospitalization)
  Sender: FDA-Public Use
  Company Number: SE-NOVOPROD-254112

PATIENT
  Age: 6 Year
  Sex: Female
  Weight: 34 kg

DRUGS (21)
  1. NOVOSEVEN [Suspect]
     Indication: HAEMATEMESIS
     Dosage: 72 UG/KG/H, UNK
     Dates: start: 20000215
  2. NOVOSEVEN [Suspect]
     Dosage: 72 UG/KG/H, UNK
     Dates: start: 20000217
  3. NOVOSEVEN [Suspect]
     Dosage: 36 UG/KG/H, UNK
     Dates: start: 20000219
  4. NOVOSEVEN [Suspect]
     Dosage: 72 UG/KG/H, UNK
     Dates: start: 20000220
  5. NOVOSEVEN [Suspect]
     Dosage: 72 UG/KG, UNK
     Route: 042
     Dates: start: 20000221
  6. OCTREOTIDE ACETATE [Concomitant]
     Dosage: 10 MIC.GRAM/HRS
     Route: 042
     Dates: start: 20000217, end: 20000218
  7. OCTREOTIDE ACETATE [Concomitant]
     Dosage: 5 MICRGR/HRS
     Route: 042
     Dates: start: 20000218, end: 20000220
  8. CLAFORAN [Concomitant]
     Dosage: 1 G, BID
     Dates: start: 20000210, end: 20000215
  9. PROTOVIT                           /00779301/ [Concomitant]
     Dosage: 12 DROPS
     Dates: end: 20000217
  10. DOKTACILLIN                        /00000501/ [Concomitant]
     Dosage: 1 G, TID
     Dates: start: 20000210, end: 20000215
  11. ELYZOL                             /00012501/ [Concomitant]
     Dosage: 5MG/ML, 40 ML TID
     Dates: start: 20000211, end: 20000215
  12. IMPORTAL [Concomitant]
     Dosage: 5 G, BID
     Dates: start: 20000211, end: 20000302
  13. KONAKION [Concomitant]
     Dosage: 10 MG, BID
     Dates: start: 20000214, end: 20000305
  14. BRUFEN                             /00109201/ [Concomitant]
     Dosage: 7.5 ML, TID
     Dates: start: 20000215, end: 20000217
  15. FUROSEMID                          /00032601/ [Concomitant]
     Dosage: 20 MG, BID
     Dates: start: 20000215, end: 20000220
  16. FUROSEMID                          /00032601/ [Concomitant]
     Dosage: 1.5 UNK, UNK
  17. VANCOMYCIN HCL [Concomitant]
     Dosage: 600 MG, BID
     Dates: start: 20000215, end: 20000218
  18. TAZOCIN [Concomitant]
     Dosage: 200MG/ML
     Dates: start: 20000215, end: 20000224
  19. LIQUID E [Concomitant]
     Dosage: 10 ML X 2
     Dates: start: 20000216, end: 20000217
  20. SOLDACTONE [Concomitant]
     Dosage: 50 MG, UNK
     Dates: start: 20000217
  21. ADDEX-KALIUM                       /00031402/ [Concomitant]
     Dosage: 2 MMOL/ML, 4 ML
     Dates: start: 20000217

REACTIONS (4)
  - MULTI-ORGAN FAILURE [None]
  - NERVOUS SYSTEM DISORDER [None]
  - RENAL FAILURE [None]
  - RESPIRATORY FAILURE [None]
